FAERS Safety Report 7991234-8 (Version None)
Quarter: 2011Q4

REPORT INFORMATION
  Report Type: 
  Country: None (occurrence: None)
  Receive Date: 20111215
  Receipt Date: 20111205
  Transmission Date: 20120403
  Serious: Yes (Life-Threatening)
  Sender: FDA-Public Use
  Company Number: TCI2011A03890

PATIENT
  Age: 61 Year
  Sex: Female

DRUGS (7)
  1. MEDROXYPROGESTERONE [Suspect]
     Indication: BREAST CANCER
     Dosage: 400 MG (200 MG, 2 IN 1 D)
     Route: 048
     Dates: start: 20030228, end: 20110608
  2. GASMOTIN (MOSAPRIDE CITRATE) [Concomitant]
  3. FURTULON (DOXIFLURIDINE) [Suspect]
     Indication: BREAST CANCER
     Dosage: 800 MG (400 MG, 2 IN 1 D)
     Route: 048
     Dates: start: 20030228, end: 20110608
  4. TERAZOSIN HCL [Suspect]
     Dosage: 0.5 MG (0.5 MG, 1 IN 1 D)
     Route: 048
     Dates: start: 20050330, end: 20110601
  5. ACTOS [Suspect]
     Indication: DIABETES MELLITUS
     Dosage: 15 MG (15 MG, 1 IN 1 D)
     Route: 048
     Dates: start: 20060308, end: 20110601
  6. MUCOSTA (REBAMIPIDE) [Concomitant]
  7. MAGNESIUM OXIDE [Concomitant]

REACTIONS (2)
  - RASH [None]
  - BLADDER CANCER [None]
